FAERS Safety Report 4889709-3 (Version None)
Quarter: 2006Q1

REPORT INFORMATION
  Report Type: 
  Country: None (occurrence: None)
  Receive Date: 20060120
  Receipt Date: 20060120
  Transmission Date: 20060701
  Serious: Yes (Other)
  Sender: FDA-Public Use
  Company Number: None

PATIENT
  Age: 20 Year
  Sex: Female
  Weight: 90.7194 kg

DRUGS (1)
  1. LIDOCAINE AND EPINEPHRINE [Suspect]
     Indication: TOOTH DISORDER
     Dates: start: 20060106

REACTIONS (4)
  - COUGH [None]
  - DRUG HYPERSENSITIVITY [None]
  - MALAISE [None]
  - THROAT TIGHTNESS [None]
